FAERS Safety Report 6413101-3 (Version None)
Quarter: 2009Q4

REPORT INFORMATION
  Report Type: 
  Country: None (occurrence: None)
  Receive Date: 20091026
  Receipt Date: 20090818
  Transmission Date: 20100525
  Serious: Yes (Other)
  Sender: FDA-Public Use
  Company Number: ES-ELI_LILLY_AND_COMPANY-ES200908006242

PATIENT
  Sex: Male

DRUGS (9)
  1. BYETTA [Suspect]
     Dosage: 5 UG, 2/D
     Route: 058
     Dates: start: 20090625, end: 20090701
  2. SECALIP [Concomitant]
     Dosage: 145 MG, DAILY (1/D)
     Route: 065
  3. ZARATOR [Concomitant]
     Dosage: 20 MG, EACH EVENING
     Route: 065
  4. NOVOMIX 30 /02607201/ [Concomitant]
     Dosage: 11 U, EACH MORNING
     Route: 065
  5. NOVOMIX 30 /02607201/ [Concomitant]
     Dosage: 9 U, EACH EVENING
     Route: 065
  6. NOVONORM [Concomitant]
     Dosage: 1 MG, DAILY (1/D)
     Route: 065
  7. METFORMIN [Concomitant]
     Dosage: 850 MG, 2/D
     Route: 065
  8. IRBESARTAN [Concomitant]
     Dosage: 150 MG, EACH MORNING
     Route: 065
  9. EUTIROX [Concomitant]
     Dosage: 125 UG, EACH MORNING
     Route: 065

REACTIONS (2)
  - HYPERSENSITIVITY [None]
  - PANCREATITIS ACUTE [None]
